FAERS Safety Report 4607065-2 (Version None)
Quarter: 2005Q1

REPORT INFORMATION
  Report Type: 
  Country: None (occurrence: None)
  Receive Date: 20050314
  Receipt Date: 20050302
  Transmission Date: 20050727
  Serious: Yes (Other)
  Sender: FDA-Public Use
  Company Number: DE-BRISTOL-MYERS SQUIBB COMPANY-12886594

PATIENT

DRUGS (1)
  1. ABILIFY [Suspect]
     Dosage: 15-30 MG/DAY
     Route: 048

REACTIONS (4)
  - BLOOD PRESSURE SYSTOLIC DECREASED [None]
  - CARDIOVASCULAR DISORDER [None]
  - FALL [None]
  - LOSS OF CONSCIOUSNESS [None]
